FAERS Safety Report 15326234 (Version 1)
Quarter: 2018Q3

REPORT INFORMATION
  Report Type: Spontaneous
  Country: US (occurrence: US)
  Receive Date: 20180823
  Receipt Date: 20180823
  Transmission Date: 20181010
  Serious: No
  Sender: FDA-Public Use
  Company Number: None

PATIENT
  Age: 81 Year
  Sex: Female
  Weight: 81.65 kg

DRUGS (15)
  1. FUROSEMIDE. [Concomitant]
     Active Substance: FUROSEMIDE
  2. TYLENOL [Concomitant]
     Active Substance: ACETAMINOPHEN
  3. ALPRAZOLAM. [Concomitant]
     Active Substance: ALPRAZOLAM
  4. OMEPRAZOLE. [Concomitant]
     Active Substance: OMEPRAZOLE
  5. LOSARTAN. [Concomitant]
     Active Substance: LOSARTAN
  6. GARLIC. [Concomitant]
     Active Substance: GARLIC
  7. AMLODIPINE [Concomitant]
     Active Substance: AMLODIPINE BESYLATE
  8. VITAMIN D [Concomitant]
     Active Substance: CHOLECALCIFEROL
  9. FISH OIL [Concomitant]
     Active Substance: FISH OIL
  10. MUCINEX [Concomitant]
     Active Substance: GUAIFENESIN
  11. ASPIRIN. [Concomitant]
     Active Substance: ASPIRIN
  12. VALSARTAN?HCTZ 320?25MG TAB [Suspect]
     Active Substance: HYDROCHLOROTHIAZIDE\VALSARTAN
     Indication: HYPERTENSION
     Dosage: ?          QUANTITY:320 DF DOSAGE FORM;?
     Route: 048
     Dates: end: 20180725
  13. VALSARTAN 320MG TAB [Suspect]
     Active Substance: VALSARTAN
     Indication: HYPERTENSION
     Dates: start: 20171205, end: 20180825
  14. ROSUVASTATIN. [Concomitant]
     Active Substance: ROSUVASTATIN
  15. ALLOPURINOL. [Concomitant]
     Active Substance: ALLOPURINOL

REACTIONS (19)
  - Muscle spasms [None]
  - Constipation [None]
  - Gout [None]
  - Paraesthesia [None]
  - Pruritus [None]
  - Haemorrhoidal haemorrhage [None]
  - Back pain [None]
  - Dysphonia [None]
  - Arthralgia [None]
  - Peripheral swelling [None]
  - Rash pruritic [None]
  - Fatigue [None]
  - Chromaturia [None]
  - Dehydration [None]
  - Product use issue [None]
  - Joint swelling [None]
  - Peripheral coldness [None]
  - Myalgia [None]
  - Faeces discoloured [None]
